FAERS Safety Report 7328244-X (Version None)
Quarter: 2011Q1

REPORT INFORMATION
  Report Type: 
  Country: None (occurrence: None)
  Receive Date: 20110303
  Receipt Date: 20110216
  Transmission Date: 20110831
  Serious: Yes (Other)
  Sender: FDA-Public Use
  Company Number: US-RANBAXY-2011US-41886

PATIENT

DRUGS (1)
  1. LORATADINE AND PSEUDOEPHEDRINE-EQUATE ALLERGY [Suspect]
     Indication: PRODUCT USED FOR UNKNOWN INDICATION
     Dosage: UNK, UNK
     Route: 065
     Dates: start: 20110125

REACTIONS (5)
  - HEMIPLEGIA [None]
  - NERVOUSNESS [None]
  - VISION BLURRED [None]
  - DIPLOPIA [None]
  - SLEEP DISORDER [None]
